FAERS Safety Report 6079452-X (Version None)
Quarter: 2009Q1

REPORT INFORMATION
  Report Type: 
  Country: None (occurrence: None)
  Receive Date: 20090216
  Receipt Date: 20090205
  Transmission Date: 20090719
  Serious: Yes (Hospitalization)
  Sender: FDA-Public Use
  Company Number: US-ELI_LILLY_AND_COMPANY-US200902001117

PATIENT
  Sex: Female

DRUGS (15)
  1. FORTEO [Suspect]
     Indication: OSTEOPOROSIS
     Dosage: 20 UG, DAILY (1/D)
     Dates: start: 20080701
  2. MAGNESIUM OXIDE [Concomitant]
  3. TYLENOL                                 /SCH/ [Concomitant]
  4. ASPIRIN [Concomitant]
  5. BENAZEPRIL HYDROCHLORIDE [Concomitant]
  6. COUMADIN [Concomitant]
  7. FUROSEMIDE [Concomitant]
  8. POTASSIUM CHLORIDE [Concomitant]
  9. LEVOTHYROXINE SODIUM [Concomitant]
  10. ESCITALOPRAM [Concomitant]
  11. LOSARTAN [Concomitant]
  12. ATORVASTATIN [Concomitant]
  13. PREDNISONE [Concomitant]
  14. METOPROLOL TARTRATE [Concomitant]
  15. ERGOCALCIFEROL [Concomitant]

REACTIONS (1)
  - VIRAL INFECTION [None]
